FAERS Safety Report 6581080-4 (Version None)
Quarter: 2010Q1

REPORT INFORMATION
  Report Type: 
  Country: None (occurrence: None)
  Receive Date: 20100215
  Receipt Date: 20100204
  Transmission Date: 20100710
  Serious: Yes (Death, Other)
  Sender: FDA-Public Use
  Company Number: JP-NOVOPROD-304066

PATIENT
  Sex: Female
  Weight: 9 kg

DRUGS (4)
  1. NOVOSEVEN [Suspect]
     Indication: PLEURAL HAEMORRHAGE
     Dosage: 0.84 MG, X6
     Route: 042
     Dates: start: 20081011, end: 20081011
  2. RED BLOOD CELLS [Concomitant]
     Dosage: 591.7ML/DIV
     Dates: start: 20081011, end: 20081011
  3. FRESH FROZEN PLASMA [Concomitant]
     Dosage: 513.3ML/DIV
     Dates: start: 20081011, end: 20081011
  4. PLATELETS [Concomitant]
     Dosage: 137.5ML/DIV
     Dates: start: 20081011, end: 20081011

REACTIONS (2)
  - DEATH [None]
  - DRUG INEFFECTIVE [None]
